FAERS Safety Report 15537569 (Version 1)
Quarter: 2018Q4

REPORT INFORMATION
  Report Type: Spontaneous
  Country: US (occurrence: US)
  Receive Date: 20181022
  Receipt Date: 20181022
  Transmission Date: 20190205
  Serious: Yes (Life-Threatening, Other)
  Sender: FDA-Public Use
  Company Number: None

PATIENT
  Age: 49 Year
  Sex: Female

DRUGS (9)
  1. HUMIRA [Suspect]
     Active Substance: ADALIMUMAB
     Indication: PSORIASIS
     Dosage: ?          OTHER FREQUENCY:EVERY OTHER WEEK;?
     Route: 058
     Dates: start: 20180119, end: 20181022
  2. ALLOPURINOL 300 MG [Concomitant]
     Active Substance: ALLOPURINOL
  3. PROMETHEGAN 25 MG [Concomitant]
     Dates: start: 20181015
  4. PREDNISONE 50MG [Concomitant]
     Dates: start: 20181019
  5. HYDROMOPHONE 2MG [Concomitant]
     Dates: start: 20181016
  6. METHOCARBAMOL 750 MG [Concomitant]
     Active Substance: METHOCARBAMOL
     Dates: start: 20181015
  7. OXYCODONE 10 MG [Concomitant]
  8. FENTANYL 25 MCG [Concomitant]
     Dates: start: 20181017
  9. OXYCODONE 40 MG ER [Concomitant]
     Dates: start: 20181012

REACTIONS (1)
  - B-cell lymphoma stage IV [None]

NARRATIVE: CASE EVENT DATE: 20181022
